FAERS Safety Report 5626109-2 (Version None)
Quarter: 2008Q1

REPORT INFORMATION
  Report Type: 
  Country: None (occurrence: None)
  Receive Date: 20080211
  Receipt Date: 20080206
  Transmission Date: 20080703
  Serious: Yes (Death, Other)
  Sender: FDA-Public Use
  Company Number: DAV-AE-HCTZ-08-002

PATIENT
  Age: 30 Year
  Sex: Male

DRUGS (2)
  1. HYDROCHLOROTHIAZIDE [Suspect]
     Indication: RENAL FAILURE CHRONIC
     Dosage: 50 MG QD
  2. OLANZAPINE [Suspect]
     Indication: SCHIZOPHRENIA, PARANOID TYPE
     Dosage: 15-20MG QD

REACTIONS (5)
  - DRUG INEFFECTIVE [None]
  - PANCYTOPENIA [None]
  - PNEUMONIA [None]
  - REFUSAL OF TREATMENT BY PATIENT [None]
  - STREPTOCOCCAL SEPSIS [None]
